FAERS Safety Report 20016556 (Version 1)
Quarter: 2021Q4

REPORT INFORMATION
  Report Type: Spontaneous
  Country: US (occurrence: None)
  Receive Date: 20211104
  Receipt Date: 20211104
  Transmission Date: 20220303
  Serious: Yes (Other)
  Sender: FDA-Public Use
  Company Number: None

PATIENT
  Age: 22 Year
  Sex: Female
  Weight: 69.85 kg

DRUGS (2)
  1. FABRAZYME [Suspect]
     Active Substance: AGALSIDASE BETA
     Indication: Fabry^s disease
     Dosage: OTHER FREQUENCY : EVERY 2 WEEKS;?
     Route: 042
  2. FABRAZYME [Suspect]
     Active Substance: AGALSIDASE BETA
     Indication: Fabry^s disease
     Dosage: OTHER FREQUENCY : EVERY 2 WEEKS;?
     Route: 042

REACTIONS (4)
  - Infusion related reaction [None]
  - Pruritus [None]
  - Chest discomfort [None]
  - Therapy interrupted [None]

NARRATIVE: CASE EVENT DATE: 20211027
